FAERS Safety Report 18968131 (Version 3)
Quarter: 2022Q3

REPORT INFORMATION
  Report Type: Spontaneous
  Country: JP (occurrence: JP)
  Receive Date: 20210304
  Receipt Date: 20220714
  Transmission Date: 20221026
  Serious: No
  Sender: FDA-Public Use
  Company Number: JP-GLAXOSMITHKLINE-JP2021JPN054559

PATIENT

DRUGS (4)
  1. FLUTICASONE FUROATE [Suspect]
     Active Substance: FLUTICASONE FUROATE
     Indication: Seasonal allergy
     Dosage: 110 UG
     Route: 045
     Dates: start: 20200225, end: 20200325
  2. FLUTICASONE FUROATE [Suspect]
     Active Substance: FLUTICASONE FUROATE
     Indication: Rhinitis allergic
  3. RUPAFIN TABLETS [Concomitant]
     Indication: Rhinitis allergic
     Dosage: 10 MG
     Route: 048
     Dates: start: 20200225
  4. NASONEX NASAL SOLUTIONS [Concomitant]
     Indication: Seasonal allergy
     Dosage: UNK
     Route: 045
     Dates: start: 20200325

REACTIONS (1)
  - Epistaxis [Recovered/Resolved]

NARRATIVE: CASE EVENT DATE: 20200225
